FAERS Safety Report 20212050 (Version 2)
Quarter: 2022Q4

REPORT INFORMATION
  Report Type: Report from Study
  Country: US (occurrence: US)
  Receive Date: 20211221
  Receipt Date: 20221230
  Transmission Date: 20230113
  Serious: No
  Sender: FDA-Public Use
  Company Number: US-ACORDA-ACO_170913_2021

PATIENT
  Age: 49 Year
  Sex: Female

DRUGS (4)
  1. INBRIJA [Suspect]
     Active Substance: LEVODOPA
     Indication: Parkinson^s disease
     Dosage: 2 DOSAGE FORM, PRN (DO NOT EXCEED 5 DOSES IN 1 DAY)
     Dates: start: 20210219
  2. INBRIJA [Suspect]
     Active Substance: LEVODOPA
     Indication: On and off phenomenon
  3. GOCOVRI [Suspect]
     Active Substance: AMANTADINE
     Indication: Product used for unknown indication
     Dosage: 137 MILLIGRAM, QHS
     Route: 065
  4. GOCOVRI [Suspect]
     Active Substance: AMANTADINE
     Dosage: 68.5 MILLIGRAM, QHS
     Route: 065

REACTIONS (6)
  - Dizziness [Not Recovered/Not Resolved]
  - COVID-19 [Not Recovered/Not Resolved]
  - Device issue [Unknown]
  - Device occlusion [Unknown]
  - Nausea [Not Recovered/Not Resolved]
  - Vomiting [Not Recovered/Not Resolved]

NARRATIVE: CASE EVENT DATE: 20211111
